FAERS Safety Report 10083994 (Version 2)
Quarter: 2014Q2

REPORT INFORMATION
  Report Type: Spontaneous
  Country: US (occurrence: US)
  Receive Date: 20140417
  Receipt Date: 20140417
  Transmission Date: 20141212
  Serious: Yes (Other)
  Sender: FDA-Public Use
  Company Number: US-009507513-1101USA00197

PATIENT
  Age: 70 Year
  Sex: Male
  Weight: 44 kg

DRUGS (6)
  1. INVANZ [Suspect]
     Dosage: 1 G, QD
  2. ERYTHROMYCIN [Concomitant]
     Dosage: 100 MG, Q8H
  3. PROMETHAZINE [Concomitant]
     Indication: NAUSEA
  4. PROMETHAZINE [Concomitant]
     Indication: VOMITING
  5. HYDROMORPHONE [Concomitant]
     Indication: PAIN
     Dosage: 1 MG, Q3H
     Route: 042
  6. OXYGEN [Concomitant]
     Route: 055

REACTIONS (6)
  - Depressed level of consciousness [Recovered/Resolved]
  - Endotracheal intubation [Unknown]
  - Depressed level of consciousness [Recovered/Resolved]
  - Delirium [Recovered/Resolved]
  - Nervous system disorder [Recovered/Resolved]
  - Mechanical ventilation [Unknown]
